FAERS Safety Report 9905476 (Version 1)
Quarter: 2013Q2

REPORT INFORMATION
  Report Type: Spontaneous
  Country: US (occurrence: None)
  Receive Date: 20130627
  Receipt Date: 20130627
  Transmission Date: 20140414
  Serious: Yes (Other)
  Sender: FDA-Public Use
  Company Number: 1000044209

PATIENT
  Age: 56 Year
  Sex: Male

DRUGS (2)
  1. LINZESS (LINACLOTIDE) (145 MICROGRAM, CAPSULES) [Suspect]
     Route: 048
     Dates: start: 201303
  2. FLOMAX (TAMSULOSIN) (TAMSULOSIN) [Concomitant]

REACTIONS (1)
  - Abdominal pain upper [None]
